FAERS Safety Report 22369769 (Version 1)
Quarter: 2023Q2

REPORT INFORMATION
  Report Type: Spontaneous
  Country: KR (occurrence: KR)
  Receive Date: 20230526
  Receipt Date: 20230526
  Transmission Date: 20230721
  Serious: Yes (Other)
  Sender: FDA-Public Use
  Company Number: KR-CELLTRION INC.-2023KR010502

PATIENT

DRUGS (7)
  1. INFLIXIMAB [Suspect]
     Active Substance: INFLIXIMAB
     Indication: Crohn^s disease
     Dosage: 120 MG
     Route: 058
     Dates: start: 20230403
  2. INFLIXIMAB [Suspect]
     Active Substance: INFLIXIMAB
     Dosage: 120 MG
     Route: 058
     Dates: start: 20230417
  3. SOLONDO [PREDNISOLONE] [Concomitant]
     Dosage: STARTING WITH 8 TABS, 2 TABLETS QD ON MAY 19
     Dates: start: 20230403
  4. PENTASA [Concomitant]
     Active Substance: MESALAMINE
     Dosage: 3 TABS, QD (STARTED 10 YEARS AGO)
  5. AZATHIOPRINE [Concomitant]
     Active Substance: AZATHIOPRINE
     Dosage: ONCE EVERY TWO DAYS (STARTED 10 YEARS AGO)
  6. PROPRANOLOL HYDROCHLORIDE [Concomitant]
     Active Substance: PROPRANOLOL HYDROCHLORIDE
     Dosage: 1 TAB, QD
     Dates: start: 202207
  7. ZANAPAM [Concomitant]
     Dosage: 1 TAB, QD
     Dates: start: 202207

REACTIONS (4)
  - Abdominal pain upper [Recovered/Resolved]
  - Body temperature increased [Not Recovered/Not Resolved]
  - Chest discomfort [Not Recovered/Not Resolved]
  - Heart rate increased [Not Recovered/Not Resolved]

NARRATIVE: CASE EVENT DATE: 20220701
